FAERS Safety Report 18094683 (Version 1)
Quarter: 2020Q3

REPORT INFORMATION
  Report Type: Other
  Country: DE (occurrence: DE)
  Receive Date: 20200730
  Receipt Date: 20200730
  Transmission Date: 20201103
  Serious: Yes (Other)
  Sender: FDA-Public Use
  Company Number: DE-MACLEODS PHARMACEUTICALS US LTD-MAC2020027477

PATIENT

DRUGS (7)
  1. ESCITALOPRAM [Suspect]
     Active Substance: ESCITALOPRAM OXALATE
     Indication: PRODUCT USED FOR UNKNOWN INDICATION
     Dosage: 10 MILLIGRAM, QD 0. ? 40.6. GESTATIONAL WEEK
     Route: 064
     Dates: start: 20190227, end: 20191210
  2. CLEXANE 20 [Concomitant]
     Indication: THROMBOSIS PROPHYLAXIS
     Dosage: UNK, 11.3. ? 11.6. GESTATIONAL WEEK, 20 [MG/D ]
     Route: 064
     Dates: start: 20190518, end: 20190521
  3. PARACETAMOL [Concomitant]
     Active Substance: ACETAMINOPHEN
     Indication: PAIN
     Dosage: UNK, 35.2. ? 38.5. GESTATIONAL WEEK
     Route: 064
  4. UTROGEST [Concomitant]
     Active Substance: PROGESTERONE
     Indication: ABORTION THREATENED
     Dosage: 100 MILLIGRAM, BID, 200 [MG/D ]/ 2X100MG DAILY, 11.3. ? 24.1. GESTATIONAL WEEK
     Route: 064
  5. OXYTOCIN. [Concomitant]
     Active Substance: OXYTOCIN
     Indication: OBSTETRICAL PROCEDURE
     Dosage: UNK, 40.6. ? 40.6. GESTATIONAL WEEK
     Route: 064
     Dates: start: 20191210, end: 20191210
  6. CYTOTEC [Concomitant]
     Active Substance: MISOPROSTOL
     Indication: LABOUR INDUCTION
     Dosage: UNK, 40.4. ? 40.6. GESTATIONAL WEEK
     Route: 064
     Dates: start: 20191208, end: 20191210
  7. MARMOR D6 / STIBIUM D6 [Concomitant]
     Indication: ABORTION THREATENED
     Dosage: UNK, 11.3. ? 11.6. GESTATIONAL WEEK
     Route: 064
     Dates: start: 20190518, end: 20190521

REACTIONS (3)
  - Small for dates baby [Recovered/Resolved]
  - Temperature regulation disorder [Recovered/Resolved]
  - Foetal exposure during pregnancy [Unknown]

NARRATIVE: CASE EVENT DATE: 20191210
